FAERS Safety Report 8790671 (Version 1)
Quarter: 2012Q4

REPORT INFORMATION
  Report Type: Spontaneous
  Country: US (occurrence: None)
  Receive Date: 20120913
  Receipt Date: 20120913
  Transmission Date: 20130627
  Serious: Yes (Other)
  Sender: FDA-Public Use
  Company Number: None

PATIENT
  Age: 56 Year
  Sex: Male

DRUGS (1)
  1. CEFTAROLINE [Suspect]
     Indication: INFECTION MRSA
     Route: 042
     Dates: start: 20120712, end: 20120724

REACTIONS (2)
  - Stevens-Johnson syndrome [None]
  - Oral disorder [None]
